FAERS Safety Report 5674031-8 (Version None)
Quarter: 2008Q1

REPORT INFORMATION
  Report Type: 
  Country: None (occurrence: None)
  Receive Date: 20080319
  Receipt Date: 20080319
  Transmission Date: 20080703
  Serious: Yes (Hospitalization)
  Sender: FDA-Public Use
  Company Number: None

PATIENT
  Age: 82 Year
  Sex: Female
  Weight: 66 kg

DRUGS (9)
  1. DILAUDID [Suspect]
     Indication: PAIN
     Dosage: 2 MG Q4H PRN PO  CHRONIC
     Route: 048
  2. LYRICA [Suspect]
     Indication: PAIN
     Dosage: 75MG TID PO  CHRONIC
     Route: 048
  3. DIGOXIN [Concomitant]
  4. SYNTHROID [Concomitant]
  5. AMIODARONE HCL [Concomitant]
  6. VASOTEC [Concomitant]
  7. ZOCOR [Concomitant]
  8. ARICEPT [Concomitant]
  9. LIDODERM [Concomitant]

REACTIONS (1)
  - SEDATION [None]
